FAERS Safety Report 13146129 (Version 1)
Quarter: 2017Q1

REPORT INFORMATION
  Report Type: Spontaneous
  Country: DE (occurrence: DE)
  Receive Date: 20170125
  Receipt Date: 20170125
  Transmission Date: 20170428
  Serious: Yes (Hospitalization, Other)
  Sender: FDA-Public Use
  Company Number: DE-CELGENEUS-DEU-2016124016

PATIENT
  Age: 57 Year
  Sex: Male
  Weight: 73.5 kg

DRUGS (1)
  1. OTEZLA [Suspect]
     Active Substance: APREMILAST
     Indication: PSORIASIS
     Dosage: 60MG
     Route: 048
     Dates: start: 20161107, end: 20161130

REACTIONS (5)
  - Erythroblastosis [Unknown]
  - Neutrophil Pelger-Huet anomaly present [Unknown]
  - Thrombophlebitis [Unknown]
  - Pustular psoriasis [Not Recovered/Not Resolved]
  - Herpes zoster [Unknown]

NARRATIVE: CASE EVENT DATE: 20161213
